FAERS Safety Report 12784375 (Version 1)
Quarter: 2016Q3

REPORT INFORMATION
  Report Type: Report from Study
  Country: CH (occurrence: CH)
  Receive Date: 20160927
  Receipt Date: 20160927
  Transmission Date: 20161109
  Serious: Yes (Hospitalization)
  Sender: FDA-Public Use
  Company Number: CH-ZLB_BIOPLASMA_AG-RED/03/03/SCH

PATIENT
  Age: 77 Year
  Sex: Female
  Weight: 54 kg

DRUGS (10)
  1. ALKERAN [Suspect]
     Active Substance: MELPHALAN
     Indication: PLASMA CELL MYELOMA
     Dosage: DAILY DOSE QUANTITY: 10, DAILY DOSE UNIT: MG
     Route: 048
     Dates: start: 20030120, end: 20030121
  2. MARCOUMAR [Concomitant]
     Active Substance: PHENPROCOUMON
     Route: 048
  3. TOREM [Concomitant]
     Active Substance: TORSEMIDE
     Indication: ESSENTIAL HYPERTENSION
     Route: 048
  4. ZAROXOLYN [Concomitant]
     Active Substance: METOLAZONE
     Indication: CHRONIC KIDNEY DISEASE
  5. TOREM [Concomitant]
     Active Substance: TORSEMIDE
     Indication: CHRONIC KIDNEY DISEASE
  6. ZAROXOLYN [Concomitant]
     Active Substance: METOLAZONE
     Indication: ESSENTIAL HYPERTENSION
     Dosage: DAILY DOSE QUANTITY: 2.5, DAILY DOSE UNIT: MG
     Route: 048
  7. IVIG LYOPHILIZED [Suspect]
     Active Substance: HUMAN IMMUNOGLOBULIN G
     Indication: PLASMA CELL MYELOMA
     Dosage: DAILY DOSE QUANTITY: 18, DAILY DOSE UNIT: G
     Route: 042
     Dates: start: 20021129, end: 20021129
  8. IVIG LYOPHILIZED [Suspect]
     Active Substance: HUMAN IMMUNOGLOBULIN G
     Dosage: DAILY DOSE QUANTITY: 18, DAILY DOSE UNIT: G
     Route: 042
     Dates: start: 20030120, end: 20030120
  9. BELOC ZOC [Concomitant]
     Indication: ESSENTIAL HYPERTENSION
     Dosage: DAILY DOSE QUANTITY: 50, DAILY DOSE UNIT: MG
     Route: 048
  10. COSAAR [Concomitant]
     Active Substance: LOSARTAN POTASSIUM
     Indication: ESSENTIAL HYPERTENSION
     Dosage: DAILY DOSE QUANTITY: 50, DAILY DOSE UNIT: MG
     Route: 048

REACTIONS (4)
  - Diarrhoea [Recovered/Resolved]
  - Anuria [Recovered/Resolved]
  - Oedema [Recovered/Resolved]
  - Blood creatinine increased [Recovered/Resolved]

NARRATIVE: CASE EVENT DATE: 20030125
